FAERS Safety Report 7811200-2 (Version None)
Quarter: 2011Q4

REPORT INFORMATION
  Report Type: 
  Country: None (occurrence: None)
  Receive Date: 20111013
  Receipt Date: 20111004
  Transmission Date: 20120403
  Serious: Yes (Hospitalization)
  Sender: FDA-Public Use
  Company Number: US-GENZYME-FABR-1002178

PATIENT

DRUGS (1)
  1. FABRAZYME [Suspect]
     Indication: FABRY'S DISEASE
     Dosage: 30 MG, Q2W
     Route: 065
     Dates: start: 20110601

REACTIONS (2)
  - DILATATION VENTRICULAR [None]
  - CARDIAC FAILURE CONGESTIVE [None]
